FAERS Safety Report 17245354 (Version 2)
Quarter: 2021Q1

REPORT INFORMATION
  Report Type: Spontaneous
  Country: US (occurrence: US)
  Receive Date: 20200108
  Receipt Date: 20210330
  Transmission Date: 20210419
  Serious: Yes (Hospitalization, Other)
  Sender: FDA-Public Use
  Company Number: US-ASTRAZENECA-2020SE01087

PATIENT
  Age: 19 Year
  Sex: Male
  Weight: 65.8 kg

DRUGS (55)
  1. PRILOSEC OTC [Suspect]
     Active Substance: OMEPRAZOLE MAGNESIUM
     Indication: GASTROOESOPHAGEAL REFLUX DISEASE
     Route: 048
     Dates: start: 2003, end: 2017
  2. LISINOPRIL. [Concomitant]
     Active Substance: LISINOPRIL
     Indication: HYPERTENSION
     Dates: start: 1998
  3. TYLENOL [Concomitant]
     Active Substance: ACETAMINOPHEN
     Indication: PAIN
     Dates: start: 199605
  4. SILDENAFIL. [Concomitant]
     Active Substance: SILDENAFIL
  5. CELLCEPT [Concomitant]
     Active Substance: MYCOPHENOLATE MOFETIL\MYCOPHENOLATE MOFETIL HYDROCHLORIDE
  6. DOCUSATE [Concomitant]
     Active Substance: DOCUSATE
  7. AMOXICILLIN. [Concomitant]
     Active Substance: AMOXICILLIN
  8. MAGNESIUM OXIDE. [Concomitant]
     Active Substance: MAGNESIUM OXIDE
  9. CLONAZEPAM. [Concomitant]
     Active Substance: CLONAZEPAM
  10. PRILOSEC [Suspect]
     Active Substance: OMEPRAZOLE MAGNESIUM
     Indication: GASTROOESOPHAGEAL REFLUX DISEASE
     Route: 048
     Dates: start: 1989, end: 201712
  11. PRILOSEC OTC [Suspect]
     Active Substance: OMEPRAZOLE MAGNESIUM
     Indication: GASTROOESOPHAGEAL REFLUX DISEASE
     Route: 048
     Dates: start: 199001, end: 201712
  12. PREVACID [Suspect]
     Active Substance: LANSOPRAZOLE
     Indication: GASTROOESOPHAGEAL REFLUX DISEASE
     Route: 065
     Dates: start: 199001, end: 201712
  13. RANITIDINE. [Concomitant]
     Active Substance: RANITIDINE
     Dates: start: 201501, end: 202001
  14. ROLAIDS [Concomitant]
     Active Substance: CALCIUM CARBONATE\MAGNESIUM HYDROXIDE
     Dates: start: 198709, end: 198909
  15. MILK OF MAGNESIA [Concomitant]
     Active Substance: MAGNESIUM HYDROXIDE
     Dates: start: 198709, end: 198909
  16. PREDNISONE. [Concomitant]
     Active Substance: PREDNISONE
  17. VITAMIN D3 [Concomitant]
     Active Substance: CHOLECALCIFEROL
  18. FENTANYL. [Concomitant]
     Active Substance: FENTANYL
  19. CLINDAMYCIN. [Concomitant]
     Active Substance: CLINDAMYCIN
  20. LIDOCAINE. [Concomitant]
     Active Substance: LIDOCAINE
  21. PRILOSEC [Suspect]
     Active Substance: OMEPRAZOLE MAGNESIUM
     Indication: GASTROOESOPHAGEAL REFLUX DISEASE
     Dosage: GENERIC
     Route: 048
     Dates: start: 20150209
  22. PEPCID [Concomitant]
     Active Substance: FAMOTIDINE
  23. AMBIEN [Concomitant]
     Active Substance: ZOLPIDEM TARTRATE
  24. SODIUM FLUORIDE. [Concomitant]
     Active Substance: SODIUM FLUORIDE
  25. AMITRIPTYLINE [Concomitant]
     Active Substance: AMITRIPTYLINE
     Indication: NEUROPATHY PERIPHERAL
     Dates: start: 1998
  26. CYCLOSPORINE. [Concomitant]
     Active Substance: CYCLOSPORINE
     Indication: RENAL TRANSPLANT
     Dates: start: 1998
  27. TUMS [Concomitant]
     Active Substance: CALCIUM CARBONATE
     Dates: start: 198709, end: 198909
  28. CALCIUM [Concomitant]
     Active Substance: CALCIUM
  29. PROMETHAZINE [Concomitant]
     Active Substance: PROMETHAZINE HYDROCHLORIDE
  30. CLONAZEPAM. [Concomitant]
     Active Substance: CLONAZEPAM
  31. FLEXERIL [Concomitant]
     Active Substance: CYCLOBENZAPRINE HYDROCHLORIDE
  32. PHENERGAN [Concomitant]
     Active Substance: PROMETHAZINE HYDROCHLORIDE
  33. MIRTAZAPINE. [Concomitant]
     Active Substance: MIRTAZAPINE
  34. ONDANSETRON [Concomitant]
     Active Substance: ONDANSETRON
  35. MELATONIN [Concomitant]
     Active Substance: MELATONIN
  36. METHADONE [Concomitant]
     Active Substance: METHADONE HYDROCHLORIDE
  37. OXYCODONE [Concomitant]
     Active Substance: OXYCODONE
  38. NICOTINE. [Concomitant]
     Active Substance: NICOTINE
  39. HEPARIN [Concomitant]
     Active Substance: HEPARIN SODIUM
  40. PROPRANOLOL [Concomitant]
     Active Substance: PROPRANOLOL HYDROCHLORIDE
  41. TACROLIMUS. [Concomitant]
     Active Substance: TACROLIMUS
     Indication: RENAL TRANSPLANT
     Dates: start: 1998
  42. VANCOMYCIN [Concomitant]
     Active Substance: VANCOMYCIN
  43. BUPROPION. [Concomitant]
     Active Substance: BUPROPION
  44. VICODIN [Concomitant]
     Active Substance: ACETAMINOPHEN\HYDROCODONE BITARTRATE
  45. PREVACID [Suspect]
     Active Substance: LANSOPRAZOLE
     Indication: GASTROOESOPHAGEAL REFLUX DISEASE
     Route: 065
     Dates: start: 1990, end: 2017
  46. ZOLPIDEM [Concomitant]
     Active Substance: ZOLPIDEM TARTRATE
  47. SEROQUEL [Concomitant]
     Active Substance: QUETIAPINE FUMARATE
  48. TRETINOIN. [Concomitant]
     Active Substance: TRETINOIN
  49. FLUTICASONE. [Concomitant]
     Active Substance: FLUTICASONE
  50. PRILOSEC [Suspect]
     Active Substance: OMEPRAZOLE MAGNESIUM
     Indication: GASTROOESOPHAGEAL REFLUX DISEASE
     Route: 048
     Dates: start: 199001, end: 201712
  51. PRILOSEC [Suspect]
     Active Substance: OMEPRAZOLE MAGNESIUM
     Indication: GASTROOESOPHAGEAL REFLUX DISEASE
     Dosage: GENERIC
     Route: 065
  52. PRILOSEC [Suspect]
     Active Substance: OMEPRAZOLE MAGNESIUM
     Indication: GASTROOESOPHAGEAL REFLUX DISEASE
     Route: 048
  53. PROTONIX [Suspect]
     Active Substance: PANTOPRAZOLE SODIUM
     Route: 065
     Dates: start: 199001, end: 201712
  54. ZANTAC [Concomitant]
     Active Substance: RANITIDINE HYDROCHLORIDE
  55. ATENOLOL. [Concomitant]
     Active Substance: ATENOLOL

REACTIONS (6)
  - Chronic kidney disease [Not Recovered/Not Resolved]
  - Nephrogenic anaemia [Unknown]
  - End stage renal disease [Not Recovered/Not Resolved]
  - Acute kidney injury [Not Recovered/Not Resolved]
  - Renal failure [Unknown]
  - Gastrooesophageal reflux disease [Not Recovered/Not Resolved]

NARRATIVE: CASE EVENT DATE: 1990
